FAERS Safety Report 5022654-1 (Version None)
Quarter: 2006Q2

REPORT INFORMATION
  Report Type: 
  Country: None (occurrence: None)
  Receive Date: 20060609
  Receipt Date: 20060601
  Transmission Date: 20061013
  Serious: Yes (Hospitalization, Other)
  Sender: FDA-Public Use
  Company Number: PT-ABBOTT-06P-130-0334943-00

PATIENT
  Sex: Female
  Weight: 67 kg

DRUGS (2)
  1. KLACID [Suspect]
     Indication: INFECTION
     Route: 048
     Dates: start: 20060302, end: 20060305
  2. ALENDRONATE SODIUM [Concomitant]
     Indication: OSTEOPOROSIS
     Route: 048

REACTIONS (9)
  - ABDOMINAL DISCOMFORT [None]
  - ABDOMINAL PAIN [None]
  - ALANINE AMINOTRANSFERASE INCREASED [None]
  - ASPARTATE AMINOTRANSFERASE INCREASED [None]
  - ASTHENIA [None]
  - DYSGEUSIA [None]
  - FATIGUE [None]
  - HEPATITIS [None]
  - NAUSEA [None]
